FAERS Safety Report 12349836 (Version 1)
Quarter: 2016Q2

REPORT INFORMATION
  Report Type: Spontaneous
  Country: US (occurrence: None)
  Receive Date: 20160509
  Receipt Date: 20160509
  Transmission Date: 20160815
  Serious: Yes (Other)
  Sender: FDA-Public Use
  Company Number: None

PATIENT
  Age: 47 Year
  Sex: Female
  Weight: 108.86 kg

DRUGS (9)
  1. KEROTOLAC [Concomitant]
  2. BOTOX [Concomitant]
     Active Substance: ONABOTULINUMTOXINA
  3. EFFEXOR [Concomitant]
     Active Substance: VENLAFAXINE HYDROCHLORIDE
  4. TYLENOL [Concomitant]
     Active Substance: ACETAMINOPHEN
  5. PHENAGREN [Concomitant]
  6. DEXILANT [Suspect]
     Active Substance: DEXLANSOPRAZOLE
     Indication: GASTROOESOPHAGEAL REFLUX DISEASE
     Dosage: 60 CAPSULE(S) TWICE A DAY TAKEN BY MOUTH
     Route: 048
  7. FLEXARIL [Concomitant]
  8. BENADRYL [Concomitant]
     Active Substance: DIPHENHYDRAMINE HYDROCHLORIDE
  9. SUMATRIPTAN. [Concomitant]
     Active Substance: SUMATRIPTAN

REACTIONS (3)
  - Lip swelling [None]
  - Therapy cessation [None]
  - Pruritus generalised [None]

NARRATIVE: CASE EVENT DATE: 20160424
